FAERS Safety Report 17741493 (Version 2)
Quarter: 2020Q4

REPORT INFORMATION
  Report Type: Spontaneous
  Country: NO (occurrence: NO)
  Receive Date: 20200504
  Receipt Date: 20201124
  Transmission Date: 20210113
  Serious: Yes (Hospitalization, Disabling, Other)
  Sender: FDA-Public Use
  Company Number: NO-PFIZER INC-2020171822

PATIENT
  Age: 74 Year
  Sex: Male

DRUGS (26)
  1. RITUXIMAB. [Concomitant]
     Active Substance: RITUXIMAB
     Indication: DIFFUSE LARGE B-CELL LYMPHOMA
     Dosage: 660 MG, CYCLIC (6 CYCLES R-MINICHOP AT REDUCED DOSE)
     Dates: start: 20190409, end: 20190805
  2. ALBYL-E [Concomitant]
     Active Substance: ASPIRIN\MAGNESIUM OXIDE
     Dosage: 75 MG
  3. CYKLOFOSFAMID [Concomitant]
     Active Substance: CYCLOPHOSPHAMIDE
     Indication: DIFFUSE LARGE B-CELL LYMPHOMA
     Dosage: 1300 MG, CYCLIC (6 CYCLES R-MINICHOP AT REDUCED DOSE)
     Dates: start: 20190409, end: 20190805
  4. PREDNISOLON [PREDNISOLONE] [Suspect]
     Active Substance: PREDNISOLONE
     Indication: DIFFUSE LARGE B-CELL LYMPHOMA
     Dosage: 6 CYCLES (ACCORDING TO NATIONAL GUIDELINES)
     Route: 037
     Dates: start: 20190409, end: 20190805
  5. DEXAMETHASONE. [Concomitant]
     Active Substance: DEXAMETHASONE
     Dosage: 2 MG
  6. SOBRIL [Concomitant]
     Active Substance: OXAZEPAM
     Dosage: 10 MG, AS NEEDED
  7. QUETIAPIN [Concomitant]
     Active Substance: QUETIAPINE
     Dosage: 100 MG, AS NEEDED
  8. AFIPRAN [Concomitant]
     Active Substance: METOCLOPRAMIDE HYDROCHLORIDE
     Dosage: 10 MG, AS NEEDED
  9. CYTARABINE. [Suspect]
     Active Substance: CYTARABINE
     Indication: DIFFUSE LARGE B-CELL LYMPHOMA
     Dosage: 6 CYCLES (ACCORDING TO NATIONAL GUIDELINES)
     Route: 037
     Dates: start: 20190409, end: 20190805
  10. PREDNISOLON [PREDNISOLONE] [Concomitant]
     Active Substance: PREDNISOLONE
     Indication: PROPHYLAXIS
     Dosage: 50 MG, CYCLIC (6 CYCLES R-MINICHOP AT REDUCED DOSE)
     Route: 048
     Dates: start: 20190409, end: 20190805
  11. BACTRIM [Concomitant]
     Active Substance: SULFAMETHOXAZOLE\TRIMETHOPRIM
     Dosage: UNK
  12. MAGNESIUM [Concomitant]
     Active Substance: MAGNESIUM
     Dosage: 350 MG
  13. OXYNORM [Concomitant]
     Active Substance: OXYCODONE HYDROCHLORIDE
     Dosage: 5 MG, AS NEEDED
  14. LAKTULOSE [Concomitant]
     Active Substance: LACTULOSE
     Dosage: 15 ML, AS NEEDED
  15. DOKSORUBICIN [Concomitant]
     Indication: DIFFUSE LARGE B-CELL LYMPHOMA
     Dosage: 62 MG, CYCLIC (6 CYCLES R-MINICHOP AT REDUCED DOSE)
     Dates: start: 20190409, end: 20190805
  16. VINCRISTINE [Concomitant]
     Active Substance: VINCRISTINE
     Indication: DIFFUSE LARGE B-CELL LYMPHOMA
     Dosage: 2 MG, CYCLIC (6 CYCLES R-MINICHOP AT REDUCED DOSE)
     Dates: start: 20190409, end: 20190805
  17. ZIEXTENZO [Concomitant]
     Active Substance: PEGFILGRASTIM-BMEZ
     Indication: PROPHYLAXIS
     Dosage: 6 MG, CYCLIC (6 CYCLES R-MINICHOP AT REDUCED DOSE)
     Dates: start: 20190409, end: 20190805
  18. METOPROLOL DEPOT [Concomitant]
     Dosage: 100 MG
  19. OXYCONTIN [Concomitant]
     Active Substance: OXYCODONE HYDROCHLORIDE
     Dosage: 10 MG
  20. ONDANSETRON [Concomitant]
     Active Substance: ONDANSETRON
     Indication: PROPHYLAXIS
     Dosage: 8 MG, CYCLIC (6 CYCLES R-MINICHOP AT REDUCED DOSE)
     Dates: start: 20190409, end: 20190805
  21. ATORVASTATIN [Concomitant]
     Active Substance: ATORVASTATIN
     Dosage: 20 MG
  22. ACICLOVIR [Concomitant]
     Active Substance: ACYCLOVIR
     Dosage: 200 MG
  23. REMERON [Concomitant]
     Active Substance: MIRTAZAPINE
     Dosage: 30 MG
  24. ALLOPUR [Concomitant]
     Active Substance: ALLOPURINOL
     Dosage: 300 MG
  25. METHOTREXATE SODIUM. [Suspect]
     Active Substance: METHOTREXATE SODIUM
     Indication: DIFFUSE LARGE B-CELL LYMPHOMA
     Dosage: 6 CYCLES (ACCORDING TO NATIONAL GUIDELINES)
     Route: 037
     Dates: start: 20190409, end: 20190805
  26. DIFLUCAN [Concomitant]
     Active Substance: FLUCONAZOLE
     Dosage: 100 MG

REACTIONS (16)
  - Anal incontinence [Unknown]
  - Myelopathy [Not Recovered/Not Resolved]
  - Decubitus ulcer [Recovering/Resolving]
  - Sensory loss [Unknown]
  - Urinary tract infection [Unknown]
  - Malaise [Unknown]
  - Dysstasia [Not Recovered/Not Resolved]
  - Spinal cord paralysis [Not Recovered/Not Resolved]
  - Infection [Recovered/Resolved]
  - Urinary incontinence [Unknown]
  - Mobility decreased [Unknown]
  - Sensory disturbance [Unknown]
  - Balance disorder [Not Recovered/Not Resolved]
  - Gait disturbance [Not Recovered/Not Resolved]
  - Psychiatric symptom [Unknown]
  - Fear of falling [Unknown]

NARRATIVE: CASE EVENT DATE: 2019
